FAERS Safety Report 19926085 (Version 2)
Quarter: 2021Q4

REPORT INFORMATION
  Report Type: Spontaneous
  Country: US (occurrence: US)
  Receive Date: 20211007
  Receipt Date: 20211106
  Transmission Date: 20220303
  Serious: Yes (Other)
  Sender: FDA-Public Use
  Company Number: US-SA-SAC20211004001581

PATIENT
  Sex: Female

DRUGS (2)
  1. AUBAGIO [Suspect]
     Active Substance: TERIFLUNOMIDE
     Indication: Multiple sclerosis
     Dosage: 14 MG, QD
     Route: 048
  2. COVID-19 VACCINE [Concomitant]
     Indication: Immunisation
     Dosage: BOOSTER

REACTIONS (7)
  - Secondary progressive multiple sclerosis [Unknown]
  - Grip strength decreased [Unknown]
  - Balance disorder [Unknown]
  - Fall [Unknown]
  - Multiple sclerosis [Unknown]
  - Skin discolouration [Unknown]
  - Arthralgia [Unknown]
